FAERS Safety Report 25804866 (Version 1)
Quarter: 2025Q3

REPORT INFORMATION
  Report Type: Spontaneous
  Country: US (occurrence: US)
  Receive Date: 20250916
  Receipt Date: 20250916
  Transmission Date: 20251020
  Serious: Yes (Death, Other)
  Sender: AMGEN
  Company Number: US-AMGEN-USASP2025180628

PATIENT

DRUGS (1)
  1. BEVACIZUMAB [Suspect]
     Active Substance: BEVACIZUMAB
     Indication: Ovarian cancer metastatic
     Route: 065

REACTIONS (4)
  - Death [Fatal]
  - Ovarian cancer recurrent [Unknown]
  - Embolism venous [Unknown]
  - COVID-19 [Unknown]
